FAERS Safety Report 21512602 (Version 3)
Quarter: 2022Q4

REPORT INFORMATION
  Report Type: Spontaneous
  Country: DE (occurrence: None)
  Receive Date: 20221027
  Receipt Date: 20221129
  Transmission Date: 20230113
  Serious: Yes (Hospitalization)
  Sender: FDA-Public Use
  Company Number: DE-ROCHE-3206969

PATIENT
  Sex: Female

DRUGS (2)
  1. AVASTIN [Suspect]
     Active Substance: BEVACIZUMAB
     Indication: Age-related macular degeneration
     Dosage: NINE INJECTIONS WITHOUT ANY ADVERSE EVENTS
     Route: 050
  2. AVASTIN [Suspect]
     Active Substance: BEVACIZUMAB
     Dosage: 10TH INJECTION: 0.05 ML CONTAINING 1.042 MG BEVACIZUMAB
     Route: 050
     Dates: start: 20220929

REACTIONS (5)
  - Vitreous disorder [Recovered/Resolved]
  - Eye irritation [Recovered/Resolved]
  - Visual acuity reduced [Recovered/Resolved]
  - Off label use [Unknown]
  - Product storage error [Unknown]

NARRATIVE: CASE EVENT DATE: 20221005
